FAERS Safety Report 12476549 (Version 1)
Quarter: 2016Q2

REPORT INFORMATION
  Report Type: Spontaneous
  Country: ES (occurrence: ES)
  Receive Date: 20160617
  Receipt Date: 20160617
  Transmission Date: 20160815
  Serious: Yes (Death, Hospitalization, Other)
  Sender: FDA-Public Use
  Company Number: ES-SUN PHARMACEUTICAL INDUSTRIES LTD-2015R1-107218

PATIENT
  Age: 48 Year
  Sex: Female
  Weight: 70 kg

DRUGS (4)
  1. GLIBENCLAMIDE [Suspect]
     Active Substance: GLYBURIDE
     Indication: DIABETES MELLITUS
     Dosage: 150 MG
     Route: 048
  2. IBUPROFEN. [Suspect]
     Active Substance: IBUPROFEN
     Indication: PRODUCT USED FOR UNKNOWN INDICATION
     Dosage: UNK
     Route: 048
  3. GLIBENCLAMIDE [Suspect]
     Active Substance: GLYBURIDE
     Indication: COMPLETED SUICIDE
  4. LORAZEPAM. [Suspect]
     Active Substance: LORAZEPAM
     Indication: PRODUCT USED FOR UNKNOWN INDICATION
     Dosage: 50 MG
     Route: 048

REACTIONS (8)
  - Hypoglycaemia [Fatal]
  - Toxicity to various agents [Unknown]
  - Brain death [Fatal]
  - Suicide attempt [Unknown]
  - Coma [Unknown]
  - Intentional overdose [Fatal]
  - Poisoning [Fatal]
  - Brain oedema [Fatal]
